FAERS Safety Report 8242785-2 (Version None)
Quarter: 2012Q1

REPORT INFORMATION
  Report Type: 
  Country: None (occurrence: None)
  Receive Date: 20120329
  Receipt Date: 20120323
  Transmission Date: 20120608
  Serious: Yes (Death, Hospitalization)
  Sender: FDA-Public Use
  Company Number: US-CELGENEUS-163-21660-12032929

PATIENT
  Age: 56 Year
  Sex: Female

DRUGS (3)
  1. CARBOPLATIN [Suspect]
     Dosage: AUC2
     Route: 041
     Dates: start: 20070101, end: 20070101
  2. ABRAXANE [Suspect]
     Indication: BREAST CANCER METASTATIC
     Dosage: 100 MILLIGRAM/SQ. METER
     Route: 041
     Dates: start: 20070101, end: 20070101
  3. CARBOPLATIN [Suspect]
     Indication: BREAST CANCER METASTATIC
     Dosage: AUC6, 1HOUR INFUSION ON DAY 1
     Route: 041
     Dates: start: 20070101

REACTIONS (9)
  - NEUROLOGICAL DECOMPENSATION [None]
  - MENTAL STATUS CHANGES [None]
  - INCONTINENCE [None]
  - HEADACHE [None]
  - NEUTROPENIA [None]
  - VOMITING [None]
  - UROSEPSIS [None]
  - HYDROCEPHALUS [None]
  - ANAEMIA [None]
